FAERS Safety Report 16684347 (Version 1)
Quarter: 2019Q3

REPORT INFORMATION
  Report Type: Report from Study
  Country: CH (occurrence: CH)
  Receive Date: 20190808
  Receipt Date: 20190808
  Transmission Date: 20191004
  Serious: Yes (Other)
  Sender: FDA-Public Use
  Company Number: CH-MYLANLABS-2019M1073875

PATIENT
  Sex: Female

DRUGS (1)
  1. REMIFENTANIL [Suspect]
     Active Substance: REMIFENTANIL
     Indication: LABOUR PAIN
     Dosage: PATIENT CONTROLLED ANALGESIA
     Route: 040

REACTIONS (4)
  - Maternal exposure during delivery [Recovered/Resolved]
  - Apnoeic attack [Recovered/Resolved]
  - Off label use [Recovered/Resolved]
  - Product administration error [Recovered/Resolved]
